FAERS Safety Report 10662830 (Version 3)
Quarter: 2015Q1

REPORT INFORMATION
  Report Type: Spontaneous
  Country: US (occurrence: US)
  Receive Date: 20141218
  Receipt Date: 20150206
  Transmission Date: 20150720
  Serious: Yes (Hospitalization, Other)
  Sender: FDA-Public Use
  Company Number: US-INCYTE CORPORATION-2014IN003865

PATIENT
  Age: 76 Year
  Sex: Female
  Weight: 59.41 kg

DRUGS (26)
  1. HYDROMORPHONE HCL [Concomitant]
     Active Substance: HYDROMORPHONE HYDROCHLORIDE
     Dosage: 2 MG TABLETS, 1 Q3-4H PRN
     Route: 048
  2. LANTUS [Concomitant]
     Active Substance: INSULIN GLARGINE
     Dosage: 14 UNIT DAILY, INSTRUCTION: (4 UNITS AND 10 UNITS)
     Route: 058
  3. CLOBETASOL PROPIONATE. [Concomitant]
     Active Substance: CLOBETASOL PROPIONATE
     Dosage: 0.05 % SPRAY, 1 SPRAY AS DIRECTED
     Route: 061
  4. FOLIC ACID. [Concomitant]
     Active Substance: FOLIC ACID
     Dosage: 0.8 MG, 1 DAILY
     Route: 048
  5. LISINOPRIL. [Concomitant]
     Active Substance: LISINOPRIL
     Dosage: 20 MG DAILY
     Route: 048
  6. OMEPRAZOLE. [Concomitant]
     Active Substance: OMEPRAZOLE
     Dosage: 20 MG 1 DAILY
     Route: 048
  7. TEMAZEPAM. [Concomitant]
     Active Substance: TEMAZEPAM
     Dosage: 15 MG, 1 QHS, PRN
     Route: 048
  8. VOLTAREN [Concomitant]
     Active Substance: DICLOFENAC SODIUM
     Dosage: 1% GEL TID
     Route: 061
  9. JAKAFI [Suspect]
     Active Substance: RUXOLITINIB
     Dosage: 5 MG TABLETS, TAKE 2 PILLS MONDAY AND FRIDAY AND 3 PILLS WEDNESDAY AFTER DIALYSIS
     Route: 048
  10. METOCLOPRAMIDE HCL [Concomitant]
     Active Substance: METOCLOPRAMIDE HYDROCHLORIDE
     Indication: NAUSEA
     Dosage: 5 MG, Q4H PRN
  11. POLYETHYLENE GLYCOL 3350. [Concomitant]
     Active Substance: POLYETHYLENE GLYCOL 3350
     Dosage: 17 G/ DOSE POWDER, 17 GM DAILY
     Route: 048
  12. CALCIUM ACETATE. [Concomitant]
     Active Substance: CALCIUM ACETATE
     Dosage: 667 MG DAILY, 3-4 TABLETS
     Route: 048
  13. LEVOTHYROXINE SODIUM. [Concomitant]
     Active Substance: LEVOTHYROXINE SODIUM
     Dosage: 200 MCG 1 DAILY, INSTRUCTIONS .2 MG
     Route: 048
  14. TYLENOL EXTRA STRENGTH [Concomitant]
     Active Substance: ACETAMINOPHEN
     Dosage: 500 MG,2 Q8H PRN
     Route: 048
  15. JAKAFI [Suspect]
     Active Substance: RUXOLITINIB
     Indication: MYELOFIBROSIS
     Dosage: 5 MG (TAKE 3 TABLETS ON MONDAY AND FRIDAY AND 2 TABLETS ON WEDNESDAY)
     Route: 048
     Dates: start: 20140805
  16. CARVEDILOL. [Concomitant]
     Active Substance: CARVEDILOL
     Dosage: 25 MG BID
     Route: 048
  17. FLORASTOR [Concomitant]
     Active Substance: SACCHAROMYCES CEREVISIAE
     Dosage: 250 MG CAPSULES 2 DAILY
     Route: 048
  18. RENO                               /06483301/ [Concomitant]
     Dosage: 1 MG DAILY
     Route: 048
  19. GLUCAGEN                           /00157803/ [Concomitant]
     Dosage: 1 MG
     Route: 042
  20. HYDRALAZINE HCL [Concomitant]
     Active Substance: HYDRALAZINE HYDROCHLORIDE
     Dosage: 100 MG TID
     Route: 048
  21. VITAMIN D2 [Concomitant]
     Active Substance: ERGOCALCIFEROL
     Dosage: 50000 UNIT
     Route: 048
  22. NIFEDIPINE. [Concomitant]
     Active Substance: NIFEDIPINE
     Dosage: 90 MG TABLETS, SUSTAINE DACTION TAKE 1 QAM
     Route: 048
  23. ONDANSETRON HCL [Concomitant]
     Active Substance: ONDANSETRON HYDROCHLORIDE
     Indication: NAUSEA
     Dosage: 4 MG, 1 Q4H PRN
     Route: 048
  24. LEVETIRACETAM. [Concomitant]
     Active Substance: LEVETIRACETAM
     Dosage: 500 MG  1 BID
     Route: 048
  25. NOVOLOG [Concomitant]
     Active Substance: INSULIN ASPART
     Dosage: 100 U
     Route: 058
  26. PRISTIQ EXTENDED RELEASE [Concomitant]
     Active Substance: DESVENLAFAXINE SUCCINATE
     Dosage: 100 MG SUSTAINED RELEASE 24 HR, 1 DAILY
     Route: 048

REACTIONS (9)
  - Humerus fracture [Unknown]
  - Oedema peripheral [Unknown]
  - Arthritis [Unknown]
  - Nausea [Unknown]
  - Seizure [Unknown]
  - Fatigue [Unknown]
  - Asthenia [Unknown]
  - Fall [Recovered/Resolved with Sequelae]
  - Tenderness [Unknown]

NARRATIVE: CASE EVENT DATE: 20141119
